FAERS Safety Report 5520714-X (Version None)
Quarter: 2007Q4

REPORT INFORMATION
  Report Type: 
  Country: None (occurrence: None)
  Receive Date: 20071119
  Receipt Date: 20071106
  Transmission Date: 20080405
  Serious: Yes (Other)
  Sender: FDA-Public Use
  Company Number: US-PFIZER INC-2007094374

PATIENT
  Sex: Female
  Weight: 68.9 kg

DRUGS (3)
  1. CHANTIX [Suspect]
     Indication: SMOKING CESSATION THERAPY
     Route: 048
     Dates: start: 20070915, end: 20071106
  2. CHOLESTEROL [Concomitant]
     Indication: BLOOD CHOLESTEROL
     Route: 048
  3. THYROID TAB [Concomitant]
     Route: 048

REACTIONS (5)
  - EYE DISORDER [None]
  - MACULAR DEGENERATION [None]
  - VISION BLURRED [None]
  - VISUAL DISTURBANCE [None]
  - VITREOUS FLOATERS [None]
